FAERS Safety Report 9179961 (Version 1)
Quarter: 2012Q4

REPORT INFORMATION
  Report Type: Report from Study
  Country: JP (occurrence: JP)
  Receive Date: 20121029
  Receipt Date: 20121029
  Transmission Date: 20130627
  Serious: Yes (Hospitalization)
  Sender: FDA-Public Use
  Company Number: JP-MERCK-1210JPN011766

PATIENT
  Age: 34 Year
  Sex: Male

DRUGS (12)
  1. REMERON [Suspect]
     Indication: DEPRESSION
     Dosage: 3 DF, qd
     Route: 048
     Dates: start: 20110404, end: 20110927
  2. REMERON [Suspect]
     Dosage: 1 DF, qd
     Route: 048
     Dates: start: 20101222, end: 20101226
  3. REMERON [Suspect]
     Dosage: 2 DF, qd
     Route: 048
     Dates: start: 20101227, end: 20110403
  4. REMERON [Suspect]
     Dosage: 1 DF, qd
     Route: 048
     Dates: start: 20110928, end: 20111011
  5. SULPIRIDE [Concomitant]
     Indication: DEPRESSION
     Dosage: 100 mg, qd
     Route: 048
     Dates: start: 20101222, end: 20110105
  6. SULPIRIDE [Concomitant]
     Indication: DEPRESSION
     Dosage: 50 mg, qd
     Route: 048
     Dates: start: 20110106, end: 20110519
  7. ROHYPNOL [Concomitant]
     Indication: INSOMNIA
     Dosage: 2 DF, qd
     Route: 048
     Dates: start: 20110203
  8. SOLANAX [Concomitant]
     Indication: ANXIETY
     Dosage: 1 DF, qd
     Route: 048
     Dates: start: 20101222, end: 20110213
  9. SOLANAX [Concomitant]
     Dosage: 2 UNK, UNK
     Route: 048
     Dates: start: 20110214, end: 20110912
  10. SOLANAX [Concomitant]
     Dosage: 3 DF, qd
     Route: 048
     Dates: start: 20110913
  11. ABILIFY [Concomitant]
     Indication: ANXIETY
     Dosage: 1 DF, qd
     Route: 048
     Dates: start: 20110318, end: 20110324
  12. ABILIFY [Concomitant]
     Indication: INSOMNIA
     Dosage: 2 DF, qd
     Route: 048
     Dates: start: 20110325, end: 20110403

REACTIONS (1)
  - Suicide attempt [Recovered/Resolved]
